FAERS Safety Report 23368292 (Version 1)
Quarter: 2024Q1

REPORT INFORMATION
  Report Type: Spontaneous
  Country: JP (occurrence: JP)
  Receive Date: 20240105
  Receipt Date: 20240105
  Transmission Date: 20240410
  Serious: Yes (Death)
  Sender: FDA-Public Use
  Company Number: JP-MTPC-MTPC2023-0030552

PATIENT
  Age: 7 Decade
  Sex: Male

DRUGS (2)
  1. EDARAVONE [Suspect]
     Active Substance: EDARAVONE
     Dosage: 5 MILLILITER, QD
     Route: 048
     Dates: start: 202305, end: 20231211
  2. EDARAVONE [Suspect]
     Active Substance: EDARAVONE
     Dosage: 5 MILLILITER, QD
     Route: 048
     Dates: start: 202305, end: 20231211

REACTIONS (1)
  - Amyotrophic lateral sclerosis [Fatal]

NARRATIVE: CASE EVENT DATE: 20231224
